FAERS Safety Report 16016242 (Version 1)
Quarter: 2019Q1

REPORT INFORMATION
  Report Type: Spontaneous
  Country: US (occurrence: US)
  Receive Date: 20190228
  Receipt Date: 20190228
  Transmission Date: 20190418
  Serious: No
  Sender: FDA-Public Use
  Company Number: US-TAKEDA-2019TUS009974

PATIENT
  Age: 66 Year
  Sex: Female
  Weight: 70.3 kg

DRUGS (5)
  1. DEXILANT [Suspect]
     Active Substance: DEXLANSOPRAZOLE
     Indication: GASTROOESOPHAGEAL REFLUX DISEASE
     Dosage: 60 MILLIGRAM
     Route: 065
     Dates: start: 201810
  2. DEXILANT [Suspect]
     Active Substance: DEXLANSOPRAZOLE
     Dosage: 60 MILLIGRAM
     Route: 065
     Dates: start: 20190119
  3. DULOXETINE. [Concomitant]
     Active Substance: DULOXETINE
     Dosage: 90 MILLIGRAM, QD
     Route: 065
  4. MVI                                /07504101/ [Concomitant]
     Indication: SUPPLEMENTATION THERAPY
     Dosage: UNK
     Route: 065
  5. GABAPENTIN. [Concomitant]
     Active Substance: GABAPENTIN
     Indication: FIBROMYALGIA
     Dosage: 600 MILLIGRAM, TID
     Route: 065

REACTIONS (1)
  - Liver function test increased [Unknown]
